FAERS Safety Report 6521143-2 (Version None)
Quarter: 2009Q4

REPORT INFORMATION
  Report Type: 
  Country: None (occurrence: None)
  Receive Date: 20091222
  Receipt Date: 20091211
  Transmission Date: 20100525
  Serious: Yes (Hospitalization)
  Sender: FDA-Public Use
  Company Number: 2009SP041011

PATIENT
  Age: 65 Year
  Sex: Male
  Weight: 127.3 kg

DRUGS (20)
  1. TEMODAR [Suspect]
     Indication: GLIOMA
     Dosage: 180 MG;QD;PO
     Route: 048
     Dates: start: 20091013, end: 20091117
  2. GLIADEL [Suspect]
     Indication: GLIOMA
     Dosage: 15.4 MG;QD;PO
     Route: 048
     Dates: start: 20090914
  3. RADIATION THERAPY [Suspect]
     Indication: GLIOMA
     Dates: start: 20091014, end: 20091117
  4. PRANDIN /00882701/ [Concomitant]
  5. CEREFOLIN [Concomitant]
  6. JANUVIA [Concomitant]
  7. LANTUS [Concomitant]
  8. LEXAPRO [Concomitant]
  9. LORTAB [Concomitant]
  10. LYRICA [Concomitant]
  11. NEXIUM [Concomitant]
  12. NIASPAN [Concomitant]
  13. LIPITOR [Concomitant]
  14. STARLIX [Concomitant]
  15. BACTRIM DS [Concomitant]
  16. TRICOR [Concomitant]
  17. ZOFRAN [Concomitant]
  18. GLUCOSAMINE [Concomitant]
  19. SENOKOT [Concomitant]
  20. DECADRON [Concomitant]

REACTIONS (1)
  - DEEP VEIN THROMBOSIS [None]
